FAERS Safety Report 5407108-2 (Version None)
Quarter: 2007Q3

REPORT INFORMATION
  Report Type: 
  Country: None (occurrence: None)
  Receive Date: 20070807
  Receipt Date: 20070724
  Transmission Date: 20080115
  Serious: Yes (Other)
  Sender: FDA-Public Use
  Company Number: B0481825A

PATIENT
  Age: 50 Year
  Sex: Male

DRUGS (10)
  1. TOSITUMOMAB [Suspect]
     Route: 065
     Dates: start: 20030501
  2. CYCLOPHOSPHAMIDE [Suspect]
     Route: 065
  3. ADRIAMYCIN PFS [Suspect]
     Route: 065
  4. VINCRISTINE [Suspect]
     Route: 065
  5. PREDNISONE TAB [Suspect]
     Route: 065
  6. RITUXAN [Suspect]
     Route: 065
  7. IFOSFAMIDE [Suspect]
     Route: 065
  8. CARBOPLATIN [Suspect]
     Route: 065
  9. ETOPOSIDE [Suspect]
     Route: 065
  10. TOTAL BODY IRRADIATION [Suspect]
     Route: 065

REACTIONS (3)
  - ERYTHROPOIESIS ABNORMAL [None]
  - MYELODYSPLASTIC SYNDROME [None]
  - THROMBOCYTOPENIA [None]
